FAERS Safety Report 19668785 (Version 1)
Quarter: 2021Q3

REPORT INFORMATION
  Report Type: Spontaneous
  Country: ES (occurrence: ES)
  Receive Date: 20210806
  Receipt Date: 20210806
  Transmission Date: 20211014
  Serious: Yes (Other)
  Sender: FDA-Public Use
  Company Number: ES-JNJFOC-20210809006

PATIENT
  Age: 85 Year
  Sex: Female
  Weight: 79 kg

DRUGS (1)
  1. TRAMADOL/APAP [Suspect]
     Active Substance: ACETAMINOPHEN\TRAMADOL
     Indication: OSTEOPOROSIS
     Dosage: 1 DOSAGE FORM, EVERY 8 HRS
     Route: 048

REACTIONS (2)
  - Hallucination [Recovered/Resolved]
  - Disorientation [Recovered/Resolved]
